FAERS Safety Report 8379695-6 (Version None)
Quarter: 2012Q2

REPORT INFORMATION
  Report Type: 
  Country: None (occurrence: None)
  Receive Date: 20120523
  Receipt Date: 20120518
  Transmission Date: 20120825
  Serious: Yes (Death, Other)
  Sender: FDA-Public Use
  Company Number: PT-ASTELLAS-2012EU003595

PATIENT
  Age: 17 Year
  Sex: Male

DRUGS (18)
  1. CASPOFUNGIN ACETATE [Concomitant]
     Indication: ANTIFUNGAL TREATMENT
     Dosage: UNK
     Route: 065
  2. CYCLOPHOSPHAMIDE [Concomitant]
     Indication: STEM CELL TRANSPLANT
     Dosage: UNK
     Route: 065
  3. ALEMTUZUMAB [Concomitant]
     Indication: STEM CELL TRANSPLANT
     Dosage: UNK
     Route: 065
  4. FLUDARABINE PHOSPHATE [Concomitant]
     Indication: STEM CELL TRANSPLANT
     Dosage: UNK
     Route: 065
  5. METHOTREXATE [Concomitant]
     Indication: PROPHYLAXIS AGAINST GRAFT VERSUS HOST DISEASE
     Dosage: UNK
     Route: 065
  6. PREDNISONE TAB [Concomitant]
     Indication: GRAFT VERSUS HOST DISEASE
     Dosage: 1 MG/KG, BID
     Route: 065
  7. PREDNISONE TAB [Concomitant]
     Dosage: UNK
     Route: 048
  8. FLUCONAZOLE [Concomitant]
     Indication: ANTIFUNGAL PROPHYLAXIS
     Dosage: 400 MG/DAY, UNKNOWN/D
     Route: 065
  9. PIPERACILLIN/TAZOBACTAM [Concomitant]
     Dosage: UNK
     Route: 065
  10. POSACONAZOLE [Interacting]
     Indication: ANTIFUNGAL PROPHYLAXIS
     Dosage: 200 MG, TID
     Route: 065
  11. AMPHOTERICIN B [Concomitant]
     Indication: ANTIFUNGAL TREATMENT
     Dosage: UNK
     Route: 065
  12. AMIKACIN [Concomitant]
     Indication: ODYNOPHAGIA
     Dosage: UNK
     Route: 065
  13. AMIKACIN [Concomitant]
     Indication: NEUTROPENIA
  14. CLINDAMYCIN [Concomitant]
     Dosage: UNK
     Route: 065
  15. VORICONAZOLE [Concomitant]
     Indication: ANTIFUNGAL TREATMENT
     Dosage: UNK
     Route: 065
  16. TACROLIMUS [Suspect]
     Indication: PROPHYLAXIS AGAINST GRAFT VERSUS HOST DISEASE
     Dosage: UNK
     Route: 065
  17. GRANULOCYTE COLONY STIMULATING FACTOR [Concomitant]
     Indication: LEUKOPENIA
     Dosage: UNK
     Route: 065
  18. AMIKACIN [Concomitant]
     Indication: COUGH

REACTIONS (7)
  - DRUG INEFFECTIVE FOR UNAPPROVED INDICATION [None]
  - SCEDOSPORIUM INFECTION [None]
  - ENCEPHALITIS [None]
  - DRUG INTERACTION [None]
  - ZYGOMYCOSIS [None]
  - SINUSITIS [None]
  - PNEUMONITIS [None]
